FAERS Safety Report 15120574 (Version 3)
Quarter: 2018Q3

REPORT INFORMATION
  Report Type: Spontaneous
  Country: US (occurrence: US)
  Receive Date: 20180709
  Receipt Date: 20180924
  Transmission Date: 20181010
  Serious: No
  Sender: FDA-Public Use
  Company Number: US-009507513-1807USA000899

PATIENT
  Age: 44 Year
  Sex: Female
  Weight: 58.96 kg

DRUGS (8)
  1. FOLLISTIM AQ [Suspect]
     Active Substance: FOLLITROPIN
     Indication: IN VITRO FERTILISATION
     Dosage: 150 IU/ DAILY
     Route: 058
     Dates: start: 20180629, end: 20180629
  2. FOLLISTIM AQ [Suspect]
     Active Substance: FOLLITROPIN
     Dosage: 150 IU/ DAILY
     Route: 058
     Dates: start: 20180630, end: 20180630
  3. FOLLISTIM AQ [Suspect]
     Active Substance: FOLLITROPIN
     Dosage: 150 IU/ DAILY
     Route: 058
     Dates: start: 20180701, end: 20180701
  4. FOLLISTIM AQ [Suspect]
     Active Substance: FOLLITROPIN
     Dosage: 150 IU, DAILY
     Route: 058
     Dates: start: 20180703, end: 20180703
  5. FOLLISTIM AQ [Suspect]
     Active Substance: FOLLITROPIN
     Dosage: 150 IU/ DAILY
     Route: 058
     Dates: start: 20180702, end: 20180702
  6. FOLLISTIM AQ [Suspect]
     Active Substance: FOLLITROPIN
     Dosage: 150 IU/ DAILY
     Route: 058
     Dates: start: 201712, end: 201712
  7. MENOPUR [Concomitant]
     Active Substance: FOLLITROPIN\LUTEINIZING HORMONE
     Dosage: UNK
  8. OMNITROPE [Concomitant]
     Active Substance: SOMATROPIN
     Dosage: UNK

REACTIONS (6)
  - Injection site pruritus [Recovered/Resolved with Sequelae]
  - Product quality issue [Unknown]
  - Injection site scar [Not Recovered/Not Resolved]
  - Injection site discolouration [Not Recovered/Not Resolved]
  - Injection site erythema [Recovered/Resolved with Sequelae]
  - Injection site swelling [Recovered/Resolved with Sequelae]

NARRATIVE: CASE EVENT DATE: 2018
